FAERS Safety Report 15093062 (Version 1)
Quarter: 2018Q2

REPORT INFORMATION
  Report Type: Spontaneous
  Country: US (occurrence: US)
  Receive Date: 20180629
  Receipt Date: 20180629
  Transmission Date: 20180711
  Serious: No
  Sender: FDA-Public Use
  Company Number: US-IPSEN BIOPHARMACEUTICALS, INC.-2018-06346

PATIENT
  Age: 74 Year
  Sex: Female

DRUGS (10)
  1. HYALURONIC ACID [Suspect]
     Active Substance: HYALURONIC ACID
     Indication: EYELID OEDEMA
     Dates: start: 20180418, end: 20180418
  2. RETIN-A [Concomitant]
     Active Substance: TRETINOIN
  3. DYSPORT [Suspect]
     Active Substance: ABOBOTULINUMTOXINA
     Indication: OFF LABEL USE
  4. RENOVA [Concomitant]
     Active Substance: TRETINOIN
  5. SIMVASTATIN. [Concomitant]
     Active Substance: SIMVASTATIN
  6. RESTYLANE L [Suspect]
     Active Substance: HYALURONIC ACID\LIDOCAINE
     Indication: SKIN COSMETIC PROCEDURE
     Dates: start: 20180403, end: 20180403
  7. TRIAMCINOLONE [Concomitant]
     Active Substance: TRIAMCINOLONE
  8. DYSPORT [Suspect]
     Active Substance: ABOBOTULINUMTOXINA
     Indication: OFF LABEL USE
  9. DYSPORT [Suspect]
     Active Substance: ABOBOTULINUMTOXINA
     Indication: SKIN WRINKLING
     Dosage: 120 UNITS
     Route: 065
     Dates: start: 20180403, end: 20180403
  10. DYSPORT [Suspect]
     Active Substance: ABOBOTULINUMTOXINA
     Indication: SKIN WRINKLING

REACTIONS (8)
  - Pain [Unknown]
  - Eyelid oedema [Recovering/Resolving]
  - Product preparation error [Unknown]
  - Nodule [Unknown]
  - Hypersensitivity [Unknown]
  - Off label use [Unknown]
  - Injection site mass [Unknown]
  - Tenderness [Unknown]

NARRATIVE: CASE EVENT DATE: 20180410
